FAERS Safety Report 8528194 (Version 2)
Quarter: 2013Q1

REPORT INFORMATION
  Report Type: Spontaneous
  Country: CA (occurrence: CA)
  Receive Date: 20120424
  Receipt Date: 20130313
  Transmission Date: 20140127
  Serious: Yes (Other)
  Sender: FDA-Public Use
  Company Number: CA-ELI_LILLY_AND_COMPANY-CA201204003502

PATIENT
  Age: 56 Year
  Sex: Male
  Weight: 78 kg

DRUGS (3)
  1. CYMBALTA [Suspect]
     Dosage: 60 MG, QD
  2. CLONAZEPAM [Concomitant]
  3. TRAMACET [Concomitant]

REACTIONS (4)
  - Pancreatitis [Not Recovered/Not Resolved]
  - Hepatic cyst [Not Recovered/Not Resolved]
  - Fatigue [Not Recovered/Not Resolved]
  - Laceration [Not Recovered/Not Resolved]
